FAERS Safety Report 9802193 (Version 30)
Quarter: 2017Q3

REPORT INFORMATION
  Report Type: Spontaneous
  Country: GB (occurrence: GB)
  Receive Date: 20140107
  Receipt Date: 20170919
  Transmission Date: 20171128
  Serious: Yes (Life-Threatening, Hospitalization, Disabling, Congenital Anomaly, Other)
  Sender: FDA-Public Use
  Company Number: GB-ABBVIE-09P-167-0601148-00

PATIENT
  Sex: Female

DRUGS (15)
  1. NITROUS OXIDE. [Concomitant]
     Active Substance: NITROUS OXIDE
     Indication: PRODUCT USED FOR UNKNOWN INDICATION
     Route: 064
  2. PREZISTA [Suspect]
     Active Substance: DARUNAVIR ETHANOLATE
     Indication: MATERNAL EXPOSURE TIMING UNSPECIFIED
     Route: 064
  3. APTIVUS [Suspect]
     Active Substance: TIPRANAVIR
     Indication: MATERNAL EXPOSURE TIMING UNSPECIFIED
     Route: 064
  4. ETRAVIRINE [Suspect]
     Active Substance: ETRAVIRINE
     Indication: MATERNAL EXPOSURE TIMING UNSPECIFIED
     Route: 064
  5. TRUVADA [Suspect]
     Active Substance: EMTRICITABINE\TENOFOVIR DISOPROXIL FUMARATE
     Indication: MATERNAL EXPOSURE TIMING UNSPECIFIED
     Route: 064
  6. PREDNISOLONE. [Concomitant]
     Active Substance: PREDNISOLONE
     Indication: PRODUCT USED FOR UNKNOWN INDICATION
     Route: 064
  7. RALTEGRAVIR. [Suspect]
     Active Substance: RALTEGRAVIR
     Indication: MATERNAL EXPOSURE TIMING UNSPECIFIED
     Route: 064
  8. TIPRANAVIR [Suspect]
     Active Substance: TIPRANAVIR
     Indication: MATERNAL EXPOSURE TIMING UNSPECIFIED
     Route: 064
  9. NOVORAPID [Concomitant]
     Active Substance: INSULIN ASPART
     Indication: GESTATIONAL DIABETES
     Route: 064
  10. ENFUVIRTIDE. [Concomitant]
     Active Substance: ENFUVIRTIDE
     Indication: PRODUCT USED FOR UNKNOWN INDICATION
     Route: 064
  11. NORVIR [Suspect]
     Active Substance: RITONAVIR
     Indication: MATERNAL EXPOSURE TIMING UNSPECIFIED
     Route: 064
  12. INTELENCE [Suspect]
     Active Substance: ETRAVIRINE
     Indication: MATERNAL EXPOSURE TIMING UNSPECIFIED
     Dosage: INTRA-UTERINE
     Route: 064
  13. OXYGEN. [Concomitant]
     Active Substance: OXYGEN
     Indication: PRODUCT USED FOR UNKNOWN INDICATION
     Route: 064
  14. ISENTRESS [Suspect]
     Active Substance: RALTEGRAVIR POTASSIUM
     Indication: MATERNAL EXPOSURE TIMING UNSPECIFIED
     Route: 064
  15. ZIDOVUDINE. [Concomitant]
     Active Substance: ZIDOVUDINE
     Indication: PRODUCT USED FOR UNKNOWN INDICATION
     Route: 064

REACTIONS (28)
  - Bladder agenesis [Recovered/Resolved with Sequelae]
  - Tethered cord syndrome [Recovered/Resolved with Sequelae]
  - Congenital spinal cord anomaly [Unknown]
  - Pain in extremity [Recovered/Resolved]
  - Anal atresia [Recovered/Resolved with Sequelae]
  - Meningomyelocele [Recovered/Resolved with Sequelae]
  - Musculoskeletal pain [Unknown]
  - Caudal regression syndrome [Not Recovered/Not Resolved]
  - Lipodystrophy acquired [Unknown]
  - Musculoskeletal deformity [Recovered/Resolved with Sequelae]
  - Caudal regression syndrome [Recovered/Resolved with Sequelae]
  - Erythema [Unknown]
  - Spina bifida [Recovered/Resolved with Sequelae]
  - Low birth weight baby [Unknown]
  - Exomphalos [Unknown]
  - Exomphalos [Recovered/Resolved with Sequelae]
  - Congenital musculoskeletal anomaly [Unknown]
  - Umbilical cord abnormality [Recovered/Resolved with Sequelae]
  - Blood iron decreased [Recovered/Resolved]
  - Anencephaly [Unknown]
  - Foetal exposure during pregnancy [Unknown]
  - Congenital ectopic bladder [Unknown]
  - Genitalia external ambiguous [Recovered/Resolved with Sequelae]
  - Sepsis [Recovered/Resolved with Sequelae]
  - Premature baby [Recovered/Resolved]
  - Cloacal exstrophy [Recovered/Resolved with Sequelae]
  - Meconium stain [Recovered/Resolved with Sequelae]
  - Selective eating disorder [Unknown]

NARRATIVE: CASE EVENT DATE: 20090221
